FAERS Safety Report 4866231-1 (Version None)
Quarter: 2005Q4

REPORT INFORMATION
  Report Type: 
  Country: None (occurrence: None)
  Receive Date: 20051221
  Receipt Date: 20051205
  Transmission Date: 20060501
  Serious: Yes (Hospitalization)
  Sender: FDA-Public Use
  Company Number: L05-USA-05631-01

PATIENT
  Age: 74 Year
  Sex: Male

DRUGS (23)
  1. DILTIAZEM HCL [Suspect]
     Indication: ATRIAL FIBRILLATION
     Dosage: 5 MG IV
     Route: 042
  2. DILTIAZEM HCL [Suspect]
     Indication: ATRIAL FIBRILLATION
     Dosage: 30 MG QID PO
     Route: 048
  3. DILTIAZEM HCL [Suspect]
     Indication: ATRIAL FIBRILLATION
     Dosage: 120 MG QID PO
     Route: 048
  4. CHLOROTHIAZIDE [Concomitant]
  5. SPIRONOLACTONE [Concomitant]
  6. ALLOPURINOL [Concomitant]
  7. ATORVASTATIN [Concomitant]
  8. FLUTICASONE/ SALMETEROL INHALER [Concomitant]
  9. MOXIFLOXACIN HCL [Concomitant]
  10. FLUCONAZOLE [Concomitant]
  11. CYTARABINE [Concomitant]
  12. IDARUBICIN HCL [Concomitant]
  13. VANCOMYCIN [Concomitant]
  14. CEFEPIME [Concomitant]
  15. TOBRAMYCIN [Concomitant]
  16. MEROPENEM [Concomitant]
  17. VORICONAZOLE [Concomitant]
  18. SULFAMETHOXAZOLE + TRIMETHOPRIM [Concomitant]
  19. LOPERAMIDE [Concomitant]
  20. AMIODARONE [Concomitant]
  21. METRONIDAZOLE [Concomitant]
  22. DIGOXIN [Concomitant]
  23. LINEZOLID [Concomitant]

REACTIONS (14)
  - ABDOMINAL DISTENSION [None]
  - ATRIAL FIBRILLATION [None]
  - BLOOD CULTURE POSITIVE [None]
  - BOWEL SOUNDS ABNORMAL [None]
  - CHRONIC OBSTRUCTIVE PULMONARY DISEASE [None]
  - COLONIC PSEUDO-OBSTRUCTION [None]
  - COLONIC STENOSIS [None]
  - DIARRHOEA [None]
  - ENTEROCOCCAL INFECTION [None]
  - ENTEROCOLITIS [None]
  - GASTROINTESTINAL HYPOMOTILITY [None]
  - MEGACOLON [None]
  - NEUTROPENIA [None]
  - PYREXIA [None]
